FAERS Safety Report 11568214 (Version 1)
Quarter: 2015Q3

REPORT INFORMATION
  Report Type: Spontaneous
  Country: US (occurrence: US)
  Receive Date: 20150916
  Receipt Date: 20150916
  Transmission Date: 20151125
  Serious: No
  Sender: FDA-Public Use
  Company Number: US-ELI_LILLY_AND_COMPANY-US200908002591

PATIENT
  Sex: Female

DRUGS (2)
  1. FORTEO [Suspect]
     Active Substance: TERIPARATIDE
     Dosage: UNK, OTHER EVERY OTHER DAY
     Dates: start: 200908, end: 20090811
  2. FORTEO [Suspect]
     Active Substance: TERIPARATIDE
     Dates: start: 200906, end: 200907

REACTIONS (4)
  - Muscular weakness [Unknown]
  - Vomiting [Unknown]
  - Nausea [Recovering/Resolving]
  - Weight decreased [Unknown]

NARRATIVE: CASE EVENT DATE: 2009
